FAERS Safety Report 4390204-9 (Version None)
Quarter: 2004Q2

REPORT INFORMATION
  Report Type: 
  Country: None (occurrence: None)
  Receive Date: 20040630
  Receipt Date: 20030730
  Transmission Date: 20050107
  Serious: Yes (Life-Threatening, Hospitalization)
  Sender: FDA-Public Use
  Company Number: WAES 0307DEU00160

PATIENT
  Age: 64 Year
  Sex: Female

DRUGS (4)
  1. ZETIA [Suspect]
     Indication: HYPERCHOLESTEROLAEMIA
     Dosage: 10 MG/DAILY
     Route: 048
     Dates: start: 20030403, end: 20030415
  2. AMITRIPTYLINE HYDROCHLORIDE [Suspect]
     Indication: DEPRESSION
     Dosage: 75 MG/DAILY
     Route: 048
  3. ASPIRIN [Concomitant]
  4. SIMVASTATIN [Concomitant]

REACTIONS (4)
  - CHOLELITHIASIS [None]
  - EOSINOPHIL COUNT INCREASED [None]
  - HEPATITIS TOXIC [None]
  - PAIN IN EXTREMITY [None]
